FAERS Safety Report 20950087 (Version 1)
Quarter: 2022Q2

REPORT INFORMATION
  Report Type: Report from Study
  Country: US (occurrence: US)
  Receive Date: 20220613
  Receipt Date: 20220613
  Transmission Date: 20220721
  Serious: Yes (Hospitalization, Other)
  Sender: FDA-Public Use
  Company Number: US-BIXINK INC.-2022-PUM-US000208

PATIENT

DRUGS (3)
  1. NERLYNX [Suspect]
     Active Substance: NERATINIB
     Indication: Product used for unknown indication
     Dosage: 3 TABLETS, DAILY
     Route: 048
     Dates: start: 20220202, end: 20220418
  2. LOMOTIL [Concomitant]
     Active Substance: ATROPINE SULFATE\DIPHENOXYLATE HYDROCHLORIDE
     Indication: Prophylaxis against diarrhoea
  3. XELODA [Concomitant]
     Active Substance: CAPECITABINE
     Indication: Product used for unknown indication

REACTIONS (6)
  - Hospitalisation [Unknown]
  - Gastrointestinal toxicity [Unknown]
  - Diarrhoea [Unknown]
  - Nausea [Unknown]
  - Drug intolerance [Unknown]
  - Underdose [Unknown]

NARRATIVE: CASE EVENT DATE: 20220101
